FAERS Safety Report 26002858 (Version 1)
Quarter: 2025Q4

REPORT INFORMATION
  Report Type: Spontaneous
  Country: EU (occurrence: EU)
  Receive Date: 20251106
  Receipt Date: 20251106
  Transmission Date: 20260117
  Serious: Yes (Other)
  Sender: AUROBINDO
  Company Number: EU-ASTRAZENECA-202506GLO028169DE

PATIENT
  Sex: Male
  Weight: 72 kg

DRUGS (13)
  1. CARBOPLATIN [Suspect]
     Active Substance: CARBOPLATIN
     Indication: Non-small cell lung cancer metastatic
     Dosage: UNK
     Route: 042
     Dates: start: 20241206, end: 20250221
  2. PEMETREXED [Suspect]
     Active Substance: PEMETREXED
     Indication: Non-small cell lung cancer metastatic
     Dosage: UNK
     Route: 042
     Dates: start: 20241206
  3. TREMELIMUMAB [Suspect]
     Active Substance: TREMELIMUMAB
     Indication: Non-small cell lung cancer metastatic
     Dosage: UNK (STANDARD ACCORDING TO THE PRODUCT INFORMATION, Q4W)
     Route: 042
     Dates: start: 20241206
  4. DURVALUMAB [Suspect]
     Active Substance: DURVALUMAB
     Indication: Non-small cell lung cancer metastatic
     Dosage: UNK (STANDARD ACCORDING TO THE PRODUCT INFORMATION, Q4W)
     Route: 042
     Dates: start: 20241206
  5. CHOLECALCIFEROL [Concomitant]
     Active Substance: CHOLECALCIFEROL
     Indication: Prophylaxis
     Dosage: 200000 INTERNATIONAL UNIT, EVERY WEEK
     Dates: start: 20250324
  6. FOLIC ACID [Concomitant]
     Active Substance: FOLIC ACID
     Indication: Prophylaxis
     Dosage: 0.4 MILLIGRAM, ONCE A DAY
     Dates: start: 20241129
  7. IPRATROPIUM BROMIDE [Concomitant]
     Active Substance: IPRATROPIUM BROMIDE
     Indication: Chronic obstructive pulmonary disease
     Dosage: 1.5 MILLIGRAM, ONCE A DAY
     Dates: start: 20250401
  8. LEVETIRACETAM [Concomitant]
     Active Substance: LEVETIRACETAM
     Indication: Metastases to central nervous system
     Dosage: 1000 MILLIGRAM, ONCE A DAY
     Dates: start: 20241209
  9. PANTOPRAZOLE SODIUM [Concomitant]
     Active Substance: PANTOPRAZOLE SODIUM
     Indication: Prophylaxis
     Dosage: 40 MILLIGRAM, ONCE A DAY
     Dates: start: 20241029
  10. PANTOPRAZOLE SODIUM [Concomitant]
     Active Substance: PANTOPRAZOLE SODIUM
     Indication: Adverse event
     Dosage: 80 MILLIGRAM, ONCE A DAY
     Dates: start: 20250326
  11. ALBUTEROL [Concomitant]
     Active Substance: ALBUTEROL
     Indication: Chronic obstructive pulmonary disease
     Dosage: 7.5 MILLIGRAM, ONCE A DAY
     Dates: start: 20250401
  12. TIOTROPIUM [Concomitant]
     Active Substance: TIOTROPIUM
     Indication: Prophylaxis
     Dosage: 5 MICROGRAM, ONCE A DAY
     Dates: start: 20241029
  13. TORSEMIDE [Concomitant]
     Active Substance: TORSEMIDE
     Indication: Prophylaxis
     Dosage: 10 MILLIGRAM, ONCE A DAY
     Dates: start: 20250329

REACTIONS (1)
  - Acute kidney injury [Recovering/Resolving]

NARRATIVE: CASE EVENT DATE: 20250616
